FAERS Safety Report 7067643-0 (Version None)
Quarter: 2010Q4

REPORT INFORMATION
  Report Type: 
  Country: None (occurrence: None)
  Receive Date: 20101028
  Receipt Date: 20101022
  Transmission Date: 20110411
  Serious: Yes (Death, Hospitalization)
  Sender: FDA-Public Use
  Company Number: ES-SP-2010-06167

PATIENT
  Age: 59 Year
  Sex: Male

DRUGS (1)
  1. IMMUCYST [Suspect]
     Indication: TRANSITIONAL CELL CARCINOMA
     Route: 043
     Dates: start: 20090701, end: 20100315

REACTIONS (3)
  - BOVINE TUBERCULOSIS [None]
  - MULTI-ORGAN FAILURE [None]
  - SEPSIS [None]
